FAERS Safety Report 7181170-1 (Version None)
Quarter: 2010Q4

REPORT INFORMATION
  Report Type: 
  Country: None (occurrence: None)
  Receive Date: 20101221
  Receipt Date: 20101215
  Transmission Date: 20110411
  Serious: Yes (Death)
  Sender: FDA-Public Use
  Company Number: PT-PFIZER INC-2010173281

PATIENT
  Age: 71 Year
  Sex: Female

DRUGS (7)
  1. ANIDULAFUNGIN [Suspect]
     Indication: CANDIDIASIS
     Dosage: 200 MG
  2. ANIDULAFUNGIN [Suspect]
     Dosage: 100 MG A DAY
  3. TAZOBACTAM [Concomitant]
  4. PIPERACILLIN [Concomitant]
  5. MEROPENEM [Concomitant]
  6. TIGECYCLINE [Concomitant]
  7. VANCOMYCIN [Concomitant]

REACTIONS (2)
  - MULTI-ORGAN FAILURE [None]
  - PATHOGEN RESISTANCE [None]
